FAERS Safety Report 8072671-2 (Version None)
Quarter: 2012Q1

REPORT INFORMATION
  Report Type: 
  Country: None (occurrence: None)
  Receive Date: 20120126
  Receipt Date: 20120118
  Transmission Date: 20120608
  Serious: Yes (Hospitalization)
  Sender: FDA-Public Use
  Company Number: US-JNJFOC-20111207390

PATIENT
  Sex: Male
  Weight: 59.4 kg

DRUGS (10)
  1. METHOTREXATE [Concomitant]
     Route: 048
  2. LEVSIN [Concomitant]
     Dosage: EVERY 4 HOURS AS NEEDED
  3. CARAFATE [Concomitant]
  4. INFLIXIMAB, RECOMBINANT [Suspect]
     Indication: INFLAMMATORY BOWEL DISEASE
     Route: 042
  5. ONDANSETRON HCL [Concomitant]
  6. INFLIXIMAB, RECOMBINANT [Suspect]
     Route: 042
     Dates: start: 20110527
  7. INFLIXIMAB, RECOMBINANT [Suspect]
     Route: 042
     Dates: start: 20090617
  8. DULCOLAX [Concomitant]
  9. NEURONTIN [Concomitant]
  10. PRILOSEC [Concomitant]

REACTIONS (1)
  - INFLAMMATORY BOWEL DISEASE [None]
